FAERS Safety Report 19092569 (Version 1)
Quarter: 2021Q2

REPORT INFORMATION
  Report Type: Other
  Country: US (occurrence: US)
  Receive Date: 20210405
  Receipt Date: 20210405
  Transmission Date: 20210717
  Serious: Yes (Death, Other)
  Sender: FDA-Public Use
  Company Number: US-ROCHE-2800448

PATIENT

DRUGS (6)
  1. ENTOSPLETINIB [Suspect]
     Active Substance: ENTOSPLETINIB
     Indication: NON-HODGKIN^S LYMPHOMA
     Route: 065
  2. IDELALISIB [Suspect]
     Active Substance: IDELALISIB
     Indication: NON-HODGKIN^S LYMPHOMA
     Route: 065
  3. RITUXIMAB. [Suspect]
     Active Substance: RITUXIMAB
     Indication: NON-HODGKIN^S LYMPHOMA
     Route: 065
  4. DUVELISIB [Suspect]
     Active Substance: DUVELISIB
     Indication: NON-HODGKIN^S LYMPHOMA
     Route: 065
  5. OBINUTUZUMAB. [Suspect]
     Active Substance: OBINUTUZUMAB
     Indication: NON-HODGKIN^S LYMPHOMA
     Route: 065
  6. BENDAMUSTINE [Suspect]
     Active Substance: BENDAMUSTINE
     Indication: NON-HODGKIN^S LYMPHOMA
     Route: 065

REACTIONS (30)
  - Febrile neutropenia [Unknown]
  - Colitis [Unknown]
  - Cough [Unknown]
  - Blood alkaline phosphatase increased [Unknown]
  - Nausea [Unknown]
  - Mucosal inflammation [Unknown]
  - Pneumonitis [Fatal]
  - Cytomegalovirus infection reactivation [Unknown]
  - Aspartate aminotransferase increased [Unknown]
  - Pneumonia [Unknown]
  - Pyrexia [Unknown]
  - Hyperglycaemia [Unknown]
  - Inflammation [Unknown]
  - Dyspnoea [Unknown]
  - Fatigue [Unknown]
  - Alanine aminotransferase increased [Unknown]
  - Pneumocystis jirovecii pneumonia [Unknown]
  - Respiratory tract infection [Unknown]
  - Sepsis [Unknown]
  - Anaemia [Unknown]
  - Rash [Unknown]
  - Urinary tract infection [Unknown]
  - Cellulitis [Unknown]
  - Thrombocytopenia [Unknown]
  - Hypoxia [Unknown]
  - Infection [Unknown]
  - Herpes zoster [Unknown]
  - Herpes simplex [Unknown]
  - Diarrhoea [Unknown]
  - Neutropenia [Unknown]
